FAERS Safety Report 4589535-9 (Version None)
Quarter: 2005Q1

REPORT INFORMATION
  Report Type: 
  Country: None (occurrence: None)
  Receive Date: 20050216
  Receipt Date: 20041221
  Transmission Date: 20050727
  Serious: Yes (Hospitalization)
  Sender: FDA-Public Use
  Company Number: 2004117956

PATIENT
  Age: 76 Year
  Sex: Male

DRUGS (4)
  1. CELEBRA (CELECOXIB) [Suspect]
     Indication: ARTHRITIS
     Dosage: 400 MG (400 MG, QD INTERVAL: DAILY), ORAL
     Route: 048
     Dates: end: 20041115
  2. ALBYL-E (ACETYLSALICYLIC ACID, MAGNESIUM OXIDE) [Suspect]
     Indication: CORONARY ARTERY DISEASE
     Dosage: 75 MG (75 MG,QD INTERVAL: DAILY), ORAL
     Route: 048
  3. KLEXANE (HEPARIN-FRACTION, SODIUM SALT) [Suspect]
     Indication: PROSTHESIS IMPLANTATION
     Dosage: 60 MG (1 IN 1 D)
  4. SELO-ZOK (METOPROLOL SUCCINATE) [Concomitant]

REACTIONS (4)
  - ARTHRITIS [None]
  - HAEMATEMESIS [None]
  - HAEMOGLOBIN DECREASED [None]
  - OESOPHAGEAL ULCER [None]
